FAERS Safety Report 8310313-9 (Version None)
Quarter: 2012Q2

REPORT INFORMATION
  Report Type: 
  Country: None (occurrence: None)
  Receive Date: 20120425
  Receipt Date: 20120418
  Transmission Date: 20120825
  Serious: Yes (Other)
  Sender: FDA-Public Use
  Company Number: PHHY2012BR034075

PATIENT
  Sex: Male

DRUGS (1)
  1. DIOVAN HCT [Suspect]

REACTIONS (1)
  - DRUG DEPENDENCE [None]
